FAERS Safety Report 10384131 (Version 2)
Quarter: 2014Q3

REPORT INFORMATION
  Report Type: Spontaneous
  Country: FR (occurrence: FR)
  Receive Date: 20140814
  Receipt Date: 20140819
  Transmission Date: 20150326
  Serious: Yes (Hospitalization, Other)
  Sender: FDA-Public Use
  Company Number: PHHY2014FR097870

PATIENT
  Age: 81 Year
  Sex: Female

DRUGS (7)
  1. ISOXAN [Concomitant]
     Dosage: 1 DF, DAILY
  2. DIFFU-K [Concomitant]
     Active Substance: POTASSIUM CHLORIDE
     Dosage: 1 DF, DAILY
  3. GLUCOPHAGE [Concomitant]
     Active Substance: METFORMIN HYDROCHLORIDE
     Dosage: 850 MG, BID
     Dates: end: 20140703
  4. TIORFAN [Concomitant]
     Active Substance: RACECADOTRIL
     Dosage: UNK UKN, BID
  5. COVERAM [Interacting]
     Active Substance: AMLODIPINE\PERINDOPRIL
     Dosage: 1 DF, QD (10 PERI/10 MG AMLO)
     Dates: start: 201401
  6. HYDROCHLOROTHIAZIDE\VALSARTAN [Suspect]
     Active Substance: HYDROCHLOROTHIAZIDE\VALSARTAN
     Dosage: 1 DF, DAILY (80 MG VALS/12.5 MG HCTZ)
     Route: 048
     Dates: start: 201406, end: 20140703
  7. SEROPLEX [Concomitant]
     Active Substance: ESCITALOPRAM OXALATE
     Dosage: 10 MG, QD
     Route: 048
     Dates: start: 201406, end: 20140704

REACTIONS (4)
  - Hypochloraemia [Recovered/Resolved]
  - Confusional state [Recovered/Resolved]
  - Hyponatraemia [Recovered/Resolved]
  - Drug interaction [Unknown]

NARRATIVE: CASE EVENT DATE: 20140702
